FAERS Safety Report 21293365 (Version 1)
Quarter: 2022Q3

REPORT INFORMATION
  Report Type: Spontaneous
  Country: US (occurrence: US)
  Receive Date: 20220905
  Receipt Date: 20220905
  Transmission Date: 20221027
  Serious: Yes (Hospitalization)
  Sender: FDA-Public Use
  Company Number: US-TERSERA THERAPEUTICS LLC-2022TRS003576

PATIENT

DRUGS (2)
  1. XERMELO [Suspect]
     Active Substance: TELOTRISTAT ETHYL
     Indication: Carcinoid syndrome
     Dosage: 250 MG, TID WITH MEALS
     Route: 065
     Dates: start: 20220815
  2. OCTREOTIDE [Concomitant]
     Active Substance: OCTREOTIDE
     Indication: Product used for unknown indication
     Dosage: UNK, MONTHLY
     Route: 065

REACTIONS (4)
  - Diarrhoea [Unknown]
  - Condition aggravated [Unknown]
  - Abdominal pain upper [Unknown]
  - Abdominal distension [Unknown]
